FAERS Safety Report 14811740 (Version 2)
Quarter: 2018Q3

REPORT INFORMATION
  Report Type: Report from Study
  Country: US (occurrence: US)
  Receive Date: 20180425
  Receipt Date: 20180720
  Transmission Date: 20181010
  Serious: No
  Sender: FDA-Public Use
  Company Number: US-AMGEN-USASL2018046185

PATIENT
  Sex: Male

DRUGS (3)
  1. NIACIN. [Concomitant]
     Active Substance: NIACIN
  2. FISH OIL [Concomitant]
     Active Substance: FISH OIL
  3. REPATHA [Suspect]
     Active Substance: EVOLOCUMAB
     Indication: LOW DENSITY LIPOPROTEIN INCREASED
     Dosage: 140 MG, Q2WK
     Route: 065

REACTIONS (1)
  - Low density lipoprotein abnormal [Unknown]
